FAERS Safety Report 7233988-4 (Version None)
Quarter: 2011Q1

REPORT INFORMATION
  Report Type: 
  Country: None (occurrence: None)
  Receive Date: 20110119
  Receipt Date: 20110106
  Transmission Date: 20110831
  Serious: Yes (Other)
  Sender: FDA-Public Use
  Company Number: US-CELGENEUS-163-21880-10110579

PATIENT
  Sex: Male

DRUGS (12)
  1. AVANDIA [Concomitant]
     Route: 065
  2. DEXAMETHASONE [Concomitant]
     Route: 065
  3. INDAPAMIDE [Concomitant]
     Route: 065
  4. ACETAMINOPHEN AND HYDROCODONE BITARTRATE [Concomitant]
     Dosage: 7.5/500
     Route: 065
  5. REVLIMID [Suspect]
     Indication: MULTIPLE MYELOMA
     Route: 048
     Dates: start: 20100824
  6. CLONIDINE [Concomitant]
     Route: 065
  7. COUMADIN [Concomitant]
     Route: 065
  8. ALLOPURINOL [Concomitant]
     Route: 065
  9. BENAZEPRIL [Concomitant]
     Route: 065
  10. AMLODIPINE [Concomitant]
     Route: 065
  11. GLYBURIDE [Concomitant]
     Route: 065
  12. COUMADIN [Concomitant]
     Route: 065

REACTIONS (3)
  - HAEMOPTYSIS [None]
  - VOMITING [None]
  - PNEUMONIA ASPIRATION [None]
